FAERS Safety Report 8157291-3 (Version None)
Quarter: 2012Q1

REPORT INFORMATION
  Report Type: 
  Country: None (occurrence: None)
  Receive Date: 20120222
  Receipt Date: 20120201
  Transmission Date: 20120608
  Serious: No
  Sender: FDA-Public Use
  Company Number: US-ROXANE LABORATORIES, INC.-2012-RO-00602RO

PATIENT
  Sex: Male

DRUGS (4)
  1. CODEINE SUL TAB [Suspect]
  2. ZYRTEC [Concomitant]
  3. NAPROXEN (ALEVE) [Concomitant]
  4. FLOMAX [Concomitant]

REACTIONS (1)
  - DRUG HYPERSENSITIVITY [None]
